FAERS Safety Report 11685293 (Version 2)
Quarter: 2016Q1

REPORT INFORMATION
  Report Type: Spontaneous
  Country: US (occurrence: US)
  Receive Date: 20151030
  Receipt Date: 20160105
  Transmission Date: 20160525
  Serious: No
  Sender: FDA-Public Use
  Company Number: US-009507513-1510USA011818

PATIENT
  Age: 27 Year
  Sex: Female

DRUGS (5)
  1. IMITREX [Concomitant]
     Active Substance: SUMATRIPTAN SUCCINATE
     Dosage: 100 MG, PRN
  2. NEXPLANON [Suspect]
     Active Substance: ETONOGESTREL
     Indication: CONTRACEPTION
     Dosage: UNK
     Route: 059
     Dates: start: 201508, end: 20151020
  3. SANCTURA [Concomitant]
     Active Substance: TROSPIUM CHLORIDE
     Dosage: 20 MG, UNK
  4. TROSPIUM CHLORIDE. [Concomitant]
     Active Substance: TROSPIUM CHLORIDE
     Dosage: 60 MG, UNK
  5. CELEXA [Concomitant]
     Active Substance: CITALOPRAM HYDROBROMIDE
     Dosage: 20 MG, UNK

REACTIONS (1)
  - Benign intracranial hypertension [Unknown]

NARRATIVE: CASE EVENT DATE: 2015
